FAERS Safety Report 9664605 (Version 1)
Quarter: 2013Q4

REPORT INFORMATION
  Report Type: Spontaneous
  Country: GB (occurrence: GB)
  Receive Date: 20131101
  Receipt Date: 20131101
  Transmission Date: 20140711
  Serious: Yes (Hospitalization)
  Sender: FDA-Public Use
  Company Number: GB-BRISTOL-MYERS SQUIBB COMPANY-19644749

PATIENT
  Age: 63 Year
  Sex: Male

DRUGS (1)
  1. BYDUREON [Suspect]
     Indication: DIABETES MELLITUS INADEQUATE CONTROL
     Route: 058
     Dates: start: 20130425, end: 20131001

REACTIONS (4)
  - Liver function test abnormal [Not Recovered/Not Resolved]
  - Nausea [Not Recovered/Not Resolved]
  - Jaundice [Not Recovered/Not Resolved]
  - Pancreatitis [Not Recovered/Not Resolved]
